FAERS Safety Report 7537936-9 (Version None)
Quarter: 2011Q2

REPORT INFORMATION
  Report Type: 
  Country: None (occurrence: None)
  Receive Date: 20110609
  Receipt Date: 20110607
  Transmission Date: 20111010
  Serious: Yes (Hospitalization, Other)
  Sender: FDA-Public Use
  Company Number: CA-ABBOTT-11P-028-0714506-00

PATIENT
  Sex: Female
  Weight: 85 kg

DRUGS (3)
  1. NORVASC [Concomitant]
     Indication: CARDIOVASCULAR DISORDER
     Dosage: 5 MG PER DAY
     Route: 048
  2. MAVIK [Suspect]
     Indication: ESSENTIAL HYPERTENSION
     Dosage: 1 MG DAILY
     Route: 048
     Dates: start: 20100708
  3. MAVIK [Suspect]
     Dosage: 4 MG DAILY
     Route: 048
     Dates: start: 20101005

REACTIONS (2)
  - POST PROCEDURAL COMPLICATION [None]
  - RESPIRATORY FAILURE [None]
